FAERS Safety Report 5844702-9 (Version None)
Quarter: 2008Q3

REPORT INFORMATION
  Report Type: 
  Country: None (occurrence: None)
  Receive Date: 20080814
  Receipt Date: 20080707
  Transmission Date: 20090109
  Serious: No
  Sender: FDA-Public Use
  Company Number: US-BAYER-200827496NA

PATIENT
  Age: 38 Year

DRUGS (2)
  1. ULTRAVIST SINGLE USE VIAL [Suspect]
     Indication: COMPUTERISED TOMOGRAM THORAX
     Dosage: TOTAL DAILY DOSE: 100 ML
     Route: 042
     Dates: start: 20080627, end: 20080627
  2. ANTIHISTAMINES [Concomitant]
     Indication: COUGH

REACTIONS (3)
  - COUGH [None]
  - NASAL CONGESTION [None]
  - SNEEZING [None]
